FAERS Safety Report 25366911 (Version 2)
Quarter: 2025Q2

REPORT INFORMATION
  Report Type: Spontaneous
  Country: JP (occurrence: JP)
  Receive Date: 20250528
  Receipt Date: 20250604
  Transmission Date: 20250716
  Serious: Yes (Hospitalization)
  Sender: ACCORD
  Company Number: JP-MLMSERVICE-20250512-PI504663-00054-1

PATIENT
  Age: 45 Year
  Sex: Female

DRUGS (8)
  1. ANASTROZOLE [Suspect]
     Active Substance: ANASTROZOLE
     Indication: Breast cancer
     Route: 048
  2. ABEMACICLIB [Suspect]
     Active Substance: ABEMACICLIB
     Indication: Breast cancer
     Route: 048
  3. ABEMACICLIB [Suspect]
     Active Substance: ABEMACICLIB
     Indication: Metastases to lung
     Route: 048
  4. ABEMACICLIB [Suspect]
     Active Substance: ABEMACICLIB
     Indication: Metastases to liver
     Route: 048
  5. ABEMACICLIB [Suspect]
     Active Substance: ABEMACICLIB
     Indication: Metastases to bone
     Route: 048
  6. ANASTROZOLE [Suspect]
     Active Substance: ANASTROZOLE
     Indication: Metastases to liver
     Route: 048
  7. ANASTROZOLE [Suspect]
     Active Substance: ANASTROZOLE
     Indication: Metastases to bone
     Route: 048
  8. ANASTROZOLE [Suspect]
     Active Substance: ANASTROZOLE
     Indication: Metastases to lung
     Route: 048

REACTIONS (1)
  - Generalised pustular psoriasis [Recovered/Resolved]
